FAERS Safety Report 17170256 (Version 4)
Quarter: 2020Q2

REPORT INFORMATION
  Report Type: Report from Study
  Country: US (occurrence: US)
  Receive Date: 20191218
  Receipt Date: 20200615
  Transmission Date: 20200713
  Serious: Yes (Hospitalization, Other)
  Sender: FDA-Public Use
  Company Number: US-ACTELION PHARMACEUTICALS LTD.-A-NJ2019-199404

PATIENT
  Age: 78 Year
  Sex: Male
  Weight: 105.22 kg

DRUGS (3)
  1. AMLODIPINE [Concomitant]
     Active Substance: AMLODIPINE BESYLATE
  2. ELIQUIS [Concomitant]
     Active Substance: APIXABAN
  3. OPSUMIT [Suspect]
     Active Substance: MACITENTAN
     Indication: PULMONARY ARTERIAL HYPERTENSION
     Dosage: 10 MG, QD
     Route: 048

REACTIONS (10)
  - Diabetes mellitus [Unknown]
  - Fall [Recovered/Resolved]
  - Limb injury [Recovered/Resolved]
  - Enzyme level decreased [Recovered/Resolved]
  - Pneumonia [Recovered/Resolved]
  - Vomiting [Recovered/Resolved]
  - Toe amputation [Unknown]
  - Cellulitis [Unknown]
  - Asthenia [Recovered/Resolved]
  - Malaise [Recovered/Resolved]

NARRATIVE: CASE EVENT DATE: 20200129
